FAERS Safety Report 7380811-3 (Version None)
Quarter: 2011Q1

REPORT INFORMATION
  Report Type: 
  Country: None (occurrence: None)
  Receive Date: 20110329
  Receipt Date: 20110321
  Transmission Date: 20110831
  Serious: Yes (Death)
  Sender: FDA-Public Use
  Company Number: A0918040A

PATIENT
  Age: 58 Year
  Sex: Male

DRUGS (1)
  1. HYCAMTIN [Suspect]
     Dosage: 3.75MG SEE DOSAGE TEXT
     Route: 048

REACTIONS (1)
  - DEATH [None]
